FAERS Safety Report 8173363-1 (Version None)
Quarter: 2012Q1

REPORT INFORMATION
  Report Type: 
  Country: None (occurrence: None)
  Receive Date: 20120104
  Receipt Date: 20111028
  Transmission Date: 20120608
  Serious: No
  Sender: FDA-Public Use
  Company Number: 2011HGS-002702

PATIENT
  Age: 55 Year
  Sex: Female
  Weight: 88.4514 kg

DRUGS (6)
  1. PREDNISONE [Concomitant]
  2. IMURAN [Concomitant]
  3. LISINOPRIL [Concomitant]
  4. BENLYSTA [Suspect]
     Indication: SYSTEMIC LUPUS ERYTHEMATOSUS
     Dosage: 1 IN 28 D, INTRAVENOUS DRIP
     Route: 041
     Dates: start: 20110801
  5. GLIMEPIRIDE (GLIMEPRIDIE) [Concomitant]
  6. VITAMIN D (ERGOCALCIFEROL) (ERGOCALCIFEROL) [Concomitant]

REACTIONS (5)
  - PARAESTHESIA [None]
  - DIARRHOEA [None]
  - SKIN DISCOLOURATION [None]
  - BURNING SENSATION [None]
  - MUSCULOSKELETAL STIFFNESS [None]
